FAERS Safety Report 16742323 (Version 4)
Quarter: 2019Q4

REPORT INFORMATION
  Report Type: Spontaneous
  Country: US (occurrence: US)
  Receive Date: 20190826
  Receipt Date: 20191126
  Transmission Date: 20200122
  Serious: No
  Sender: FDA-Public Use
  Company Number: US-JNJFOC-20190810787

PATIENT
  Sex: Male
  Weight: 104.42 kg

DRUGS (11)
  1. INVEGA SUSTENNA [Suspect]
     Active Substance: PALIPERIDONE PALMITATE
     Route: 030
  2. RISPERDAL CONSTA [Suspect]
     Active Substance: RISPERIDONE
     Route: 030
     Dates: start: 2019
  3. CLONIDINE. [Concomitant]
     Active Substance: CLONIDINE
     Indication: SEDATION
     Route: 065
  4. CLONAZEPAM. [Concomitant]
     Active Substance: CLONAZEPAM
     Indication: PRODUCT USED FOR UNKNOWN INDICATION
     Route: 065
  5. OLANZAPINE. [Concomitant]
     Active Substance: OLANZAPINE
     Indication: PRODUCT USED FOR UNKNOWN INDICATION
     Route: 065
  6. RISPERDAL CONSTA [Suspect]
     Active Substance: RISPERIDONE
     Dosage: 30-SOMETHING
     Route: 030
  7. INVEGA SUSTENNA [Suspect]
     Active Substance: PALIPERIDONE PALMITATE
     Indication: PRODUCT USED FOR UNKNOWN INDICATION
     Route: 030
  8. UNSPECIFIED JNJ COMPOUND [Suspect]
     Active Substance: UNSPECIFIED INGREDIENT
     Indication: PRODUCT USED FOR UNKNOWN INDICATION
     Route: 048
     Dates: start: 2019
  9. LORAZEPAM. [Concomitant]
     Active Substance: LORAZEPAM
     Indication: PRODUCT USED FOR UNKNOWN INDICATION
     Route: 065
  10. RISPERDAL CONSTA [Suspect]
     Active Substance: RISPERIDONE
     Indication: PRODUCT USED FOR UNKNOWN INDICATION
     Route: 030
  11. CLOMIPRAMINE [Concomitant]
     Active Substance: CLOMIPRAMINE
     Indication: SEDATION
     Route: 065

REACTIONS (17)
  - Hallucination, visual [Not Recovered/Not Resolved]
  - Screaming [Not Recovered/Not Resolved]
  - Abnormal behaviour [Not Recovered/Not Resolved]
  - Headache [Not Recovered/Not Resolved]
  - Mass [Unknown]
  - Weight increased [Unknown]
  - Feeling abnormal [Unknown]
  - Cognitive disorder [Unknown]
  - Urinary incontinence [Unknown]
  - Fatigue [Unknown]
  - Impaired quality of life [Not Recovered/Not Resolved]
  - Injection site mass [Unknown]
  - Drug ineffective [Unknown]
  - Hallucination, auditory [Not Recovered/Not Resolved]
  - Impaired work ability [Not Recovered/Not Resolved]
  - Aggression [Unknown]
  - Restlessness [Not Recovered/Not Resolved]
